FAERS Safety Report 7677069-4 (Version None)
Quarter: 2011Q3

REPORT INFORMATION
  Report Type: 
  Country: None (occurrence: None)
  Receive Date: 20110811
  Receipt Date: 20110729
  Transmission Date: 20111222
  Serious: Yes (Other)
  Sender: FDA-Public Use
  Company Number: CA-ELI_LILLY_AND_COMPANY-CA201108000643

PATIENT
  Age: 55 Year
  Sex: Female

DRUGS (8)
  1. VITAMIN D [Concomitant]
  2. FORTEO [Suspect]
     Dosage: 20 UG, QD
     Route: 058
     Dates: end: 20110728
  3. IMURAN [Concomitant]
  4. RANITIDINE [Concomitant]
  5. FORTEO [Suspect]
     Indication: OSTEOPOROSIS
     Dosage: 20 UG, QD
     Route: 058
     Dates: start: 20110519
  6. PREDNISONE [Concomitant]
     Indication: ADDISON'S DISEASE
  7. FLORINEF [Concomitant]
  8. ESTRACE [Concomitant]

REACTIONS (3)
  - DIZZINESS [None]
  - COMPLEX PARTIAL SEIZURES [None]
  - ADDISON'S DISEASE [None]
